FAERS Safety Report 7998505-X (Version None)
Quarter: 2011Q4

REPORT INFORMATION
  Report Type: 
  Country: None (occurrence: None)
  Receive Date: 20111221
  Receipt Date: 20111215
  Transmission Date: 20120403
  Serious: Yes (Other)
  Sender: FDA-Public Use
  Company Number: US-ROCHE-798726

PATIENT
  Sex: Male
  Weight: 94.886 kg

DRUGS (4)
  1. ACCUTANE [Suspect]
     Dates: start: 19950802, end: 19950923
  2. TETRACYCLINE [Concomitant]
     Dates: start: 19900919
  3. ACCUTANE [Suspect]
     Dates: start: 19961223, end: 19970404
  4. ACCUTANE [Suspect]
     Indication: ACNE
     Route: 065
     Dates: start: 19921006, end: 19930101

REACTIONS (6)
  - CROHN'S DISEASE [None]
  - CHAPPED LIPS [None]
  - COLONIC POLYP [None]
  - INFLAMMATORY BOWEL DISEASE [None]
  - EPISTAXIS [None]
  - DRY SKIN [None]
